FAERS Safety Report 7414901-3 (Version None)
Quarter: 2011Q2

REPORT INFORMATION
  Report Type: 
  Country: None (occurrence: None)
  Receive Date: 20110405
  Receipt Date: 20110328
  Transmission Date: 20111010
  Serious: Yes (Other)
  Sender: FDA-Public Use
  Company Number: IMP_05370_2011

PATIENT
  Sex: Female

DRUGS (1)
  1. MIDODRINE 5 MG [Suspect]
     Indication: PRODUCT USED FOR UNKNOWN INDICATION
     Dosage: (3 DOSES)

REACTIONS (4)
  - BLOOD PRESSURE DECREASED [None]
  - DRUG INEFFECTIVE [None]
  - APPARENT LIFE THREATENING EVENT [None]
  - PRODUCT QUALITY ISSUE [None]
